FAERS Safety Report 15111636 (Version 5)
Quarter: 2018Q4

REPORT INFORMATION
  Report Type: Spontaneous
  Country: GB (occurrence: GB)
  Receive Date: 20180705
  Receipt Date: 20180914
  Transmission Date: 20190204
  Serious: Yes (Other)
  Sender: FDA-Public Use
  Company Number: GB-PFIZER INC-17534

PATIENT
  Age: 42 Year
  Sex: Male

DRUGS (4)
  1. SULFAMETHOXAZOLE/TRIMETHOPRIM [Suspect]
     Active Substance: SULFAMETHOXAZOLE\TRIMETHOPRIM
     Indication: BURKHOLDERIA CEPACIA COMPLEX INFECTION
     Dosage: 1.44 G, 2X/DAY
     Route: 042
     Dates: start: 200306
  2. DICLOFENAC [Interacting]
     Active Substance: DICLOFENAC
     Indication: PLEURITIC PAIN
     Dosage: UNK
     Route: 065
     Dates: start: 200306
  3. TOBRAMYCIN SULFATE. [Interacting]
     Active Substance: TOBRAMYCIN SULFATE
     Indication: PSEUDOMONAS INFECTION
     Dosage: 160 MG, 3X/DAY
     Route: 042
     Dates: start: 200306
  4. COLOMYCIN (COLISTIN SULFATE) [Interacting]
     Active Substance: COLISTIN SULFATE
     Indication: PSEUDOMONAS INFECTION
     Dosage: 2 MEGAUNITS, 3X/DAY
     Route: 042
     Dates: start: 200306

REACTIONS (5)
  - Acute kidney injury [Not Recovered/Not Resolved]
  - Ataxia [Unknown]
  - Drug interaction [Unknown]
  - Dizziness [Unknown]
  - Tinnitus [Unknown]

NARRATIVE: CASE EVENT DATE: 2003
